FAERS Safety Report 5638166-8 (Version None)
Quarter: 2008Q1

REPORT INFORMATION
  Report Type: 
  Country: None (occurrence: None)
  Receive Date: 20080226
  Receipt Date: 20080215
  Transmission Date: 20080703
  Serious: Yes (Hospitalization, Other)
  Sender: FDA-Public Use
  Company Number: JP-BRISTOL-MYERS SQUIBB COMPANY-14012132

PATIENT
  Age: 77 Year
  Sex: Female

DRUGS (6)
  1. MEVALOTIN [Suspect]
     Indication: HYPERLIPIDAEMIA
     Route: 048
     Dates: start: 20061010, end: 20071202
  2. DIOVAN [Concomitant]
     Indication: HYPERTENSION
     Route: 048
     Dates: start: 20020924
  3. NORVASC [Concomitant]
     Indication: HYPERTENSION
     Route: 048
  4. ALMARL [Concomitant]
     Indication: HYPERTENSION
     Route: 048
     Dates: start: 19980525
  5. LOXONIN [Concomitant]
     Indication: ANALGESIA
     Route: 048
     Dates: start: 20071030
  6. CYANOCOBALAMIN [Concomitant]
     Indication: NEUROPATHY PERIPHERAL
     Route: 048
     Dates: start: 20071030

REACTIONS (3)
  - MUSCULOSKELETAL PAIN [None]
  - OEDEMA PERIPHERAL [None]
  - RHABDOMYOLYSIS [None]
